FAERS Safety Report 7726641-1 (Version None)
Quarter: 2011Q3

REPORT INFORMATION
  Report Type: 
  Country: None (occurrence: None)
  Receive Date: 20110902
  Receipt Date: 20110825
  Transmission Date: 20111222
  Serious: Yes (Other)
  Sender: FDA-Public Use
  Company Number: PHHY2009GB11462

PATIENT
  Age: 3 Year
  Sex: Male

DRUGS (3)
  1. BUSULFAN [Concomitant]
  2. CYCLOSPORINE [Suspect]
     Indication: STEM CELL TRANSPLANT
  3. CYCLOPHOSPHAMIDE [Concomitant]

REACTIONS (8)
  - JAUNDICE [None]
  - HEPATIC FUNCTION ABNORMAL [None]
  - CHRONIC GRAFT VERSUS HOST DISEASE [None]
  - BILE DUCT STENOSIS [None]
  - HYPERBILIRUBINAEMIA [None]
  - TRANSAMINASES INCREASED [None]
  - ACUTE GRAFT VERSUS HOST DISEASE IN SKIN [None]
  - RASH [None]
